FAERS Safety Report 7414315-6 (Version None)
Quarter: 2011Q2

REPORT INFORMATION
  Report Type: 
  Country: None (occurrence: None)
  Receive Date: 20110411
  Receipt Date: 20110411
  Transmission Date: 20111010
  Serious: Yes (Disabling, Other)
  Sender: FDA-Public Use
  Company Number: None

PATIENT
  Age: 34 Year
  Sex: Female
  Weight: 90.7194 kg

DRUGS (1)
  1. SERTRALINE HCL 100 MG NORTHSTAR [Suspect]
     Indication: MAJOR DEPRESSION
     Dosage: 200 MG ONCE DAILY PO
     Route: 048
     Dates: start: 20110320, end: 20110408

REACTIONS (9)
  - DRUG WITHDRAWAL SYNDROME [None]
  - IRRITABILITY [None]
  - TREMOR [None]
  - MORBID THOUGHTS [None]
  - MAJOR DEPRESSION [None]
  - PRODUCT SUBSTITUTION ISSUE [None]
  - CRYING [None]
  - DECREASED APPETITE [None]
  - DISEASE RECURRENCE [None]
